FAERS Safety Report 9052952 (Version 1)
Quarter: 2013Q1

REPORT INFORMATION
  Report Type: Spontaneous
  Country: US (occurrence: US)
  Receive Date: 20130208
  Receipt Date: 20130208
  Transmission Date: 20140127
  Serious: No
  Sender: FDA-Public Use
  Company Number: US-009507513-1302USA002504

PATIENT
  Sex: Male
  Weight: 90.7 kg

DRUGS (8)
  1. VICTRELIS [Suspect]
     Dosage: TAKE 4 CAPSULES BY MOUTH EVERY 8 HOURS WITH FOOD,200 MG, Q8H
     Route: 048
  2. RIBAVIRIN [Suspect]
  3. PEGASYS [Suspect]
     Dosage: PROCLICK
  4. PROTONIX [Concomitant]
  5. PAXIL [Concomitant]
  6. METHADONE HYDROCHLORIDE [Concomitant]
  7. ASPIRIN [Concomitant]
     Dosage: CHEWABLE
  8. OMEGA-3 MARINE TRIGLYCERIDES [Concomitant]
     Dosage: FISH OIL CAPSULE

REACTIONS (2)
  - White blood cell count decreased [Unknown]
  - Red blood cell count decreased [Unknown]
